FAERS Safety Report 9247521 (Version 1)
Quarter: 2013Q2

REPORT INFORMATION
  Report Type: Spontaneous
  Country: US (occurrence: US)
  Receive Date: 20130423
  Receipt Date: 20130423
  Transmission Date: 20140414
  Serious: No
  Sender: FDA-Public Use
  Company Number: US-BAYER-2013-050542

PATIENT
  Age: 68 Year
  Sex: Female
  Weight: 69 kg

DRUGS (2)
  1. GADAVIST [Suspect]
     Indication: METASTATIC NEOPLASM
     Dosage: 7 ML, ONCE
     Route: 042
     Dates: start: 20130418
  2. GADAVIST [Suspect]
     Indication: NUCLEAR MAGNETIC RESONANCE IMAGING

REACTIONS (1)
  - Oropharyngeal discomfort [None]
